FAERS Safety Report 6288044-9 (Version None)
Quarter: 2009Q3

REPORT INFORMATION
  Report Type: 
  Country: None (occurrence: None)
  Receive Date: 20090729
  Receipt Date: 20090727
  Transmission Date: 20100115
  Serious: Yes (Other)
  Sender: FDA-Public Use
  Company Number: US-ASTRAZENECA-2009UW08835

PATIENT
  Age: 59 Year
  Sex: Female
  Weight: 109.3 kg

DRUGS (4)
  1. SYMBICORT [Suspect]
     Indication: CHRONIC OBSTRUCTIVE PULMONARY DISEASE
     Dosage: 160/4.5 MG 2 PUFFS BID
     Route: 055
     Dates: end: 20090403
  2. ALBUTEROL [Concomitant]
     Indication: ASTHMA
  3. ATROVENT [Concomitant]
     Indication: ASTHMA
  4. FLOVENT [Concomitant]
     Indication: ASTHMA
     Dates: start: 20070101, end: 20081201

REACTIONS (3)
  - CARDIAC DISORDER [None]
  - CATARACT [None]
  - GLAUCOMA [None]
